FAERS Safety Report 6379035-8 (Version None)
Quarter: 2009Q3

REPORT INFORMATION
  Report Type: 
  Country: None (occurrence: None)
  Receive Date: 20090928
  Receipt Date: 20090922
  Transmission Date: 20100115
  Serious: Yes (Other)
  Sender: FDA-Public Use
  Company Number: PHHY2009GB40778

PATIENT
  Age: 44 Year
  Sex: Male

DRUGS (1)
  1. OXCARBAZEPINE [Suspect]
     Indication: TRIGEMINAL NEURALGIA
     Dosage: 450 MG, BID
     Route: 048
     Dates: start: 20090801, end: 20090904

REACTIONS (3)
  - HYPONATRAEMIA [None]
  - INAPPROPRIATE ANTIDIURETIC HORMONE SECRETION [None]
  - MALAISE [None]
